FAERS Safety Report 11725197 (Version 2)
Quarter: 2016Q1

REPORT INFORMATION
  Report Type: Spontaneous
  Country: US (occurrence: US)
  Receive Date: 20151111
  Receipt Date: 20160203
  Transmission Date: 20160525
  Serious: No
  Sender: FDA-Public Use
  Company Number: US-UCBSA-2015011527

PATIENT
  Sex: Male
  Weight: 81 kg

DRUGS (3)
  1. VIMPAT [Suspect]
     Active Substance: LACOSAMIDE
     Indication: SEIZURE
     Dosage: 100 MG 3 BID
     Route: 048
  2. KLONOPIN [Concomitant]
     Active Substance: CLONAZEPAM
     Indication: ANXIETY
     Dosage: 0.5 MG, 2X/DAY (BID)
     Route: 048
  3. KEPPRA [Suspect]
     Active Substance: LEVETIRACETAM
     Indication: SEIZURE
     Dosage: 1000 MG 2.5 BID
     Route: 048

REACTIONS (7)
  - Off label use [Unknown]
  - Musculoskeletal pain [Unknown]
  - Hand fracture [Unknown]
  - Headache [Unknown]
  - Anxiety [Unknown]
  - Overdose [Unknown]
  - Seizure [Unknown]
